FAERS Safety Report 4339655-9 (Version None)
Quarter: 2004Q1

REPORT INFORMATION
  Report Type: 
  Country: None (occurrence: None)
  Receive Date: 20040329
  Receipt Date: 20040106
  Transmission Date: 20041129
  Serious: No
  Sender: FDA-Public Use
  Company Number: 04P-163-0246275-00

PATIENT
  Age: 67 Year
  Sex: Female

DRUGS (7)
  1. HUMIRA [Suspect]
     Indication: RHEUMATOID ARTHRITIS
     Dosage: 40 MG, 1 IN 2 WK, SUBCUTANEOUS
     Route: 058
     Dates: start: 20030101, end: 20031127
  2. NAPROXEN [Concomitant]
  3. PREDNISONE [Concomitant]
  4. FLU SHOT [Concomitant]
  5. ASCORBIC ACID [Concomitant]
  6. CALCIUM [Concomitant]
  7. PROPACET 100 [Concomitant]

REACTIONS (8)
  - DYSPNOEA [None]
  - INFLUENZA [None]
  - PLEURISY [None]
  - PRODUCTIVE COUGH [None]
  - RASH [None]
  - SPINAL FRACTURE [None]
  - UPPER RESPIRATORY TRACT INFECTION [None]
  - WOUND INFECTION [None]
